FAERS Safety Report 8231253-X (Version None)
Quarter: 2012Q1

REPORT INFORMATION
  Report Type: 
  Country: None (occurrence: None)
  Receive Date: 20120323
  Receipt Date: 20120314
  Transmission Date: 20120608
  Serious: Yes (Hospitalization)
  Sender: FDA-Public Use
  Company Number: JP-JNJFOC-20120309027

PATIENT
  Age: 66 Year
  Sex: Male

DRUGS (6)
  1. RISPERDAL [Suspect]
     Indication: INSOMNIA
     Route: 048
  2. QUETIAPINE [Suspect]
     Indication: INSOMNIA
     Route: 065
  3. LEVOMEPROMAZINE [Suspect]
     Indication: INSOMNIA
     Route: 065
  4. RISPERDAL [Suspect]
     Indication: AGGRESSION
     Route: 048
  5. LEVOMEPROMAZINE [Suspect]
     Indication: AGGRESSION
     Route: 065
  6. QUETIAPINE [Suspect]
     Indication: AGGRESSION
     Route: 065

REACTIONS (3)
  - OPISTHOTONUS [None]
  - BRADYPHRENIA [None]
  - DYSKINESIA [None]
